FAERS Safety Report 25204655 (Version 1)
Quarter: 2025Q2

REPORT INFORMATION
  Report Type: Spontaneous
  Country: CZ (occurrence: CZ)
  Receive Date: 20250416
  Receipt Date: 20250416
  Transmission Date: 20250717
  Serious: Yes (Hospitalization, Disabling, Other)
  Sender: ROCHE
  Company Number: None

PATIENT
  Age: 66 Year
  Sex: Female
  Weight: 59 kg

DRUGS (6)
  1. KADCYLA [Suspect]
     Active Substance: ADO-TRASTUZUMAB EMTANSINE
     Indication: Adenocarcinoma of salivary gland
     Dosage: A TOTAL OF 10 CYCLES OF 3 WEEKS EACH, 7 CYCLES AT A DOSE OF 230 MG, THE LAST 2 CYCLES AT A DOSE OF 2
     Route: 050
     Dates: start: 20240415, end: 20250127
  2. Citalec 20mg [Concomitant]
  3. Helicid 20mg [Concomitant]
  4. Xanax 0,25mg [Concomitant]
     Dosage: 1-1-1, DURING RESTLESSNESS
  5. ASCORBIC ACID\RUTIN [Concomitant]
     Active Substance: ASCORBIC ACID\RUTIN
  6. Fortecortin 4mg [Concomitant]

REACTIONS (7)
  - Radiation necrosis [Not Recovered/Not Resolved]
  - Fatigue [Unknown]
  - Alopecia [Not Recovered/Not Resolved]
  - Brain oedema [Unknown]
  - Disturbance in attention [Unknown]
  - Confusional state [Unknown]
  - Cognitive disorder [Unknown]

NARRATIVE: CASE EVENT DATE: 20240801
